FAERS Safety Report 7497427-0 (Version None)
Quarter: 2011Q2

REPORT INFORMATION
  Report Type: 
  Country: None (occurrence: None)
  Receive Date: 20110523
  Receipt Date: 20110509
  Transmission Date: 20111010
  Serious: Yes (Hospitalization)
  Sender: FDA-Public Use
  Company Number: JP-ASTRAZENECA-2011SE16983

PATIENT
  Age: 12417 Day
  Sex: Male

DRUGS (8)
  1. CISPLATIN [Suspect]
     Indication: TESTICULAR NEOPLASM
     Dates: start: 20110214, end: 20110218
  2. NEOPHAGEN [Concomitant]
  3. LASIX [Concomitant]
  4. BLEOMYCIN HYDROCHLORIDE [Suspect]
     Indication: TESTICULAR NEOPLASM
     Dates: start: 20110214, end: 20110221
  5. IMMUNE GLOBULIN INTRAVENOUS (HUMAN) [Concomitant]
  6. MEROPENEM [Suspect]
     Indication: FEBRILE NEUTROPENIA
     Route: 042
     Dates: start: 20110228, end: 20110306
  7. SOLU-CORTEF [Concomitant]
  8. ETOPOSIDE [Suspect]
     Indication: TESTICULAR NEOPLASM
     Dates: start: 20110214, end: 20110218

REACTIONS (1)
  - HEPATIC FUNCTION ABNORMAL [None]
